FAERS Safety Report 10173693 (Version 1)
Quarter: 2014Q2

REPORT INFORMATION
  Report Type: Spontaneous
  Country: US (occurrence: None)
  Receive Date: 20140514
  Receipt Date: 20140514
  Transmission Date: 20141212
  Serious: Yes (Other)
  Sender: FDA-Public Use
  Company Number: None

PATIENT
  Age: 34 Year
  Sex: Female
  Weight: 54.43 kg

DRUGS (1)
  1. BACTRIM DS [Suspect]
     Indication: FURUNCLE
     Dosage: 14, TWICE DAILY, --
     Dates: start: 20140424, end: 20140429

REACTIONS (24)
  - Arthralgia [None]
  - Anxiety [None]
  - Depression [None]
  - Decreased interest [None]
  - Influenza like illness [None]
  - Vision blurred [None]
  - Eye irritation [None]
  - Arthralgia [None]
  - Drug hypersensitivity [None]
  - Menorrhagia [None]
  - Lip pain [None]
  - Abdominal pain [None]
  - Nausea [None]
  - Diarrhoea [None]
  - Chills [None]
  - Pyrexia [None]
  - Musculoskeletal stiffness [None]
  - Sunburn [None]
  - Lip swelling [None]
  - Paraesthesia [None]
  - Burning sensation [None]
  - Urticaria [None]
  - Back pain [None]
  - Pain in extremity [None]
